FAERS Safety Report 12410946 (Version 3)
Quarter: 2016Q3

REPORT INFORMATION
  Report Type: Spontaneous
  Country: ES (occurrence: ES)
  Receive Date: 20160527
  Receipt Date: 20160715
  Transmission Date: 20161109
  Serious: Yes (Death, Hospitalization)
  Sender: FDA-Public Use
  Company Number: ES-009507513-1605ESP005263

PATIENT
  Age: 83 Year
  Sex: Male

DRUGS (2)
  1. PROMETAX [Suspect]
     Active Substance: RIVASTIGMINE
     Indication: PARKINSON^S DISEASE
     Dosage: 1 PATCH, Q24H (FIRST ONE APPLIED FOR 24 HOURS, SECOND APPLIED FOR 8 HOURS)
     Route: 062
     Dates: start: 20160423, end: 20160424
  2. SINEMET PLUS 25/100 MG (IR) [Suspect]
     Active Substance: CARBIDOPA\LEVODOPA
     Indication: PARKINSON^S DISEASE
     Dosage: 5 TABLETS, DAILY
     Route: 048
     Dates: start: 2013

REACTIONS (17)
  - Phlebitis [Recovered/Resolved with Sequelae]
  - Death [Fatal]
  - Anuria [Not Recovered/Not Resolved]
  - Abasia [Not Recovered/Not Resolved]
  - Renal failure [Not Recovered/Not Resolved]
  - Pneumonia [Not Recovered/Not Resolved]
  - Skin ulcer [Not Recovered/Not Resolved]
  - Aphasia [Not Recovered/Not Resolved]
  - Muscle disorder [Not Recovered/Not Resolved]
  - Anaemia [Not Recovered/Not Resolved]
  - Thrombosis [Not Recovered/Not Resolved]
  - Parkinson^s disease [Unknown]
  - Muscle rigidity [Not Recovered/Not Resolved]
  - Asthenia [Not Recovered/Not Resolved]
  - Decubitus ulcer [Unknown]
  - Joint range of motion decreased [Not Recovered/Not Resolved]
  - Dysphagia [Not Recovered/Not Resolved]

NARRATIVE: CASE EVENT DATE: 20160423
